FAERS Safety Report 4293165-6 (Version None)
Quarter: 2004Q1

REPORT INFORMATION
  Report Type: 
  Country: None (occurrence: None)
  Receive Date: 20040212
  Receipt Date: 20030615
  Transmission Date: 20041129
  Serious: No
  Sender: FDA-Public Use
  Company Number: US-GLAXOSMITHKLINE-A0412938A

PATIENT
  Sex: Female

DRUGS (1)
  1. PAXIL [Suspect]
     Indication: ANXIETY

REACTIONS (4)
  - ANXIETY [None]
  - HYPERTROPHY BREAST [None]
  - SEXUAL DYSFUNCTION [None]
  - WEIGHT INCREASED [None]
